FAERS Safety Report 13939528 (Version 1)
Quarter: 2017Q3

REPORT INFORMATION
  Report Type: Spontaneous
  Country: US (occurrence: US)
  Receive Date: 20170906
  Receipt Date: 20170906
  Transmission Date: 20171127
  Serious: No
  Sender: FDA-Public Use
  Company Number: US-PFIZER INC-2017380249

PATIENT
  Sex: Female

DRUGS (2)
  1. CLONAZEPAM. [Concomitant]
     Active Substance: CLONAZEPAM
     Dosage: 0.5 MG, UNK
  2. LYRICA [Suspect]
     Active Substance: PREGABALIN

REACTIONS (3)
  - Disease recurrence [Unknown]
  - Anxiety [Unknown]
  - Confusional state [Unknown]
